FAERS Safety Report 22312822 (Version 2)
Quarter: 2024Q3

REPORT INFORMATION
  Report Type: Report from Study
  Country: IT (occurrence: IT)
  Receive Date: 20230512
  Receipt Date: 20240715
  Transmission Date: 20241016
  Serious: Yes (Other)
  Sender: TEVA
  Company Number: None

PATIENT
  Age: 13 Year
  Sex: Male
  Weight: 43 kg

DRUGS (3)
  1. VINCRISTINE [Suspect]
     Active Substance: VINCRISTINE
     Indication: Ewing^s sarcoma
     Dosage: VINCRISTINE TEVA ITALIA
     Route: 042
     Dates: start: 20230403, end: 20230403
  2. CYCLOPHOSPHAMIDE [Suspect]
     Active Substance: CYCLOPHOSPHAMIDE
     Indication: Ewing^s sarcoma
     Dosage: ENDOXAN BAXTER
     Route: 042
     Dates: start: 20230403, end: 20230403
  3. DOXORUBICIN HYDROCHLORIDE [Suspect]
     Active Substance: DOXORUBICIN HYDROCHLORIDE
     Indication: Ewing^s sarcoma
     Dosage: HEALTHCARE ITALIA
     Route: 042
     Dates: start: 20230403, end: 20230404

REACTIONS (5)
  - Thrombocytopenia [Not Recovered/Not Resolved]
  - Anaemia [Recovered/Resolved]
  - Stomatitis [Not Recovered/Not Resolved]
  - Febrile neutropenia [Not Recovered/Not Resolved]
  - Constipation [Recovering/Resolving]

NARRATIVE: CASE EVENT DATE: 20230411
